FAERS Safety Report 9775288 (Version 1)
Quarter: 2013Q4

REPORT INFORMATION
  Report Type: Spontaneous
  Country: US (occurrence: US)
  Receive Date: 20131220
  Receipt Date: 20131220
  Transmission Date: 20140711
  Serious: No
  Sender: FDA-Public Use
  Company Number: US-GALDERMA-US13003189

PATIENT
  Age: 22 Year
  Sex: Male

DRUGS (4)
  1. MIRVASO (BRIMONIDINE) TOPICAL GEL, 0.33% [Suspect]
     Indication: ROSACEA
     Dosage: 0.33%
     Route: 061
     Dates: start: 20131008, end: 20131010
  2. AVAR (SODIUM SULFACETAMIDE 10% AND SULFUR 5%) CLEA NSER [Suspect]
     Indication: THERAPEUTIC SKIN CARE TOPICAL
     Route: 061
     Dates: start: 20131008
  3. VANICREAM SPF 30 [Concomitant]
     Indication: DRY SKIN PROPHYLAXIS
     Route: 061
  4. VANICREAM SPF 30 [Concomitant]
     Indication: PROPHYLAXIS AGAINST SOLAR RADIATION

REACTIONS (7)
  - Pallor [Recovered/Resolved]
  - Rash macular [Not Recovered/Not Resolved]
  - Chemical injury [Unknown]
  - Sensation of blood flow [Unknown]
  - Erythema [Not Recovered/Not Resolved]
  - Skin burning sensation [Unknown]
  - Skin warm [Not Recovered/Not Resolved]
